FAERS Safety Report 4986288-7 (Version None)
Quarter: 2006Q2

REPORT INFORMATION
  Report Type: 
  Country: None (occurrence: None)
  Receive Date: 20060428
  Receipt Date: 20050829
  Transmission Date: 20061013
  Serious: Yes (Hospitalization)
  Sender: FDA-Public Use
  Company Number: US-MERCK-0508USA04776

PATIENT
  Age: 40 Year
  Sex: Male
  Weight: 120 kg

DRUGS (6)
  1. VIOXX [Suspect]
     Indication: ARTHRITIS
     Route: 048
     Dates: start: 20020322, end: 20041221
  2. VIOXX [Suspect]
     Route: 048
     Dates: start: 20020322, end: 20041221
  3. VIOXX [Suspect]
     Indication: BURSITIS
     Route: 048
     Dates: start: 20020322, end: 20041221
  4. VIOXX [Suspect]
     Route: 048
     Dates: start: 20020322, end: 20041221
  5. TYLENOL (CAPLET) [Concomitant]
     Route: 065
  6. ULTRAM [Concomitant]
     Route: 065

REACTIONS (8)
  - ARTHRALGIA [None]
  - CALCULUS URETERIC [None]
  - CEREBROVASCULAR ACCIDENT [None]
  - CHEST PAIN [None]
  - FATIGUE [None]
  - HYPOAESTHESIA [None]
  - LYMPHADENOPATHY [None]
  - NEPHROLITHIASIS [None]
